FAERS Safety Report 10219781 (Version 1)
Quarter: 2014Q2

REPORT INFORMATION
  Report Type: Spontaneous
  Country: US (occurrence: US)
  Receive Date: 20140605
  Receipt Date: 20140605
  Transmission Date: 20141212
  Serious: Yes (Other)
  Sender: FDA-Public Use
  Company Number: US-ASTELLAS-2014US006337

PATIENT
  Age: 31 Year
  Sex: 0

DRUGS (3)
  1. ASTAGRAF XL [Suspect]
     Indication: RENAL TRANSPLANT
     Route: 048
  2. ASTAGRAF XL [Suspect]
     Route: 048
     Dates: start: 201405
  3. ASTAGRAF XL [Suspect]
     Route: 048

REACTIONS (1)
  - Immunosuppressant drug level decreased [Unknown]
